FAERS Safety Report 20920947 (Version 1)
Quarter: 2022Q2

REPORT INFORMATION
  Report Type: Spontaneous
  Country: JP (occurrence: JP)
  Receive Date: 20220606
  Receipt Date: 20220606
  Transmission Date: 20220721
  Serious: Yes (Hospitalization, Other)
  Sender: FDA-Public Use
  Company Number: JP-PFIZER INC-202200779822

PATIENT

DRUGS (2)
  1. PAXLOVID [Suspect]
     Active Substance: NIRMATRELVIR\RITONAVIR
     Indication: COVID-19 treatment
     Dosage: 15 DAYS
     Route: 048
     Dates: start: 202205
  2. SOTROVIMAB [Concomitant]
     Active Substance: SOTROVIMAB
     Dosage: UNK

REACTIONS (6)
  - COVID-19 [Unknown]
  - Disease recurrence [Unknown]
  - Drug ineffective [Unknown]
  - Fibrosis [Unknown]
  - Off label use [Unknown]
  - Incorrect product administration duration [Unknown]

NARRATIVE: CASE EVENT DATE: 20220501
